FAERS Safety Report 4702520-9 (Version None)
Quarter: 2005Q2

REPORT INFORMATION
  Report Type: 
  Country: None (occurrence: None)
  Receive Date: 20050615
  Receipt Date: 20050606
  Transmission Date: 20051028
  Serious: Yes (Hospitalization)
  Sender: FDA-Public Use
  Company Number: GBWYE721206JUN05

PATIENT
  Age: 3 Year
  Sex: Male

DRUGS (1)
  1. REFACTO [Suspect]
     Indication: HAEMOPHILIA
     Dosage: ('ON  DEMAND' THERAPY)
     Route: 042

REACTIONS (3)
  - EPISTAXIS [None]
  - PLASMIN INHIBITOR [None]
  - VARICELLA [None]
